FAERS Safety Report 4354477-0 (Version None)
Quarter: 2004Q2

REPORT INFORMATION
  Report Type: 
  Country: None (occurrence: None)
  Receive Date: 20040503
  Receipt Date: 20040420
  Transmission Date: 20050107
  Serious: Yes (Other)
  Sender: FDA-Public Use
  Company Number: 2004020725

PATIENT
  Age: 55 Year
  Sex: Female
  Weight: 47 kg

DRUGS (6)
  1. LIPITOR [Suspect]
     Indication: HYPERCHOLESTEROLAEMIA
     Dosage: 5 MG (DAILY), ORAL
     Route: 048
     Dates: start: 20040130, end: 20040324
  2. NICORANDIL (NICORANDIL) [Suspect]
     Indication: HYPERTENSION
     Dates: start: 20040128, end: 20040130
  3. NISOLDIPINE (NISOLDIPINE) [Suspect]
     Indication: HYPERTENSION
     Dates: start: 20040128, end: 20040130
  4. VALSARTAN (VALSARTAN) [Suspect]
     Indication: HYPERTENSION
     Dates: start: 20040130, end: 20040324
  5. TRAPIDIL (TRAPIDIL) [Suspect]
     Indication: HYPERTENSION
     Dosage: ORAL
     Route: 048
     Dates: start: 20040130, end: 20040324
  6. KALLIDINOGENASE (KALLIDINOGENASE) [Concomitant]

REACTIONS (4)
  - CHOLESTASIS [None]
  - DIABETES MELLITUS [None]
  - DIZZINESS [None]
  - HEPATITIS [None]
